FAERS Safety Report 25752050 (Version 1)
Quarter: 2025Q3

REPORT INFORMATION
  Report Type: Spontaneous
  Country: EU (occurrence: EU)
  Receive Date: 20250902
  Receipt Date: 20250902
  Transmission Date: 20251020
  Serious: Yes (Hospitalization)
  Sender: NOVO NORDISK
  Company Number: EU-NOVOPROD-1507252

PATIENT
  Age: 720 Month
  Sex: Male
  Weight: 80 kg

DRUGS (2)
  1. SOGROYA [Suspect]
     Active Substance: SOMAPACITAN-BECO
     Dosage: 1.5 MG, QW
     Route: 058
  2. SOGROYA [Suspect]
     Active Substance: SOMAPACITAN-BECO
     Indication: Growth hormone deficiency
     Dosage: 2 MG, QW
     Route: 058
     Dates: start: 20240724

REACTIONS (1)
  - Hernia [Recovered/Resolved]

NARRATIVE: CASE EVENT DATE: 20250301
